FAERS Safety Report 8709968 (Version 2)
Quarter: 2013Q1

REPORT INFORMATION
  Report Type: Spontaneous
  Country: US (occurrence: US)
  Receive Date: 20120806
  Receipt Date: 20130124
  Transmission Date: 20140127
  Serious: No
  Sender: FDA-Public Use
  Company Number: US-009507513-1207USA011813

PATIENT
  Sex: Female
  Weight: 53.52 kg

DRUGS (3)
  1. MIRALAX [Suspect]
     Indication: PRODUCT USED FOR UNKNOWN INDICATION
     Dosage: 8.5 G, QAM
     Route: 048
  2. MIRALAX [Suspect]
     Indication: MEDICAL OBSERVATION
  3. PROPRANOLOL HYDROCHLORIDE [Concomitant]
     Indication: PRODUCT USED FOR UNKNOWN INDICATION
     Dosage: 60 MG, QD

REACTIONS (3)
  - Oropharyngeal pain [Unknown]
  - Abdominal discomfort [Recovered/Resolved]
  - Underdose [Unknown]
